FAERS Safety Report 7737789-X (Version None)
Quarter: 2011Q3

REPORT INFORMATION
  Report Type: 
  Country: None (occurrence: None)
  Receive Date: 20110908
  Receipt Date: 20110825
  Transmission Date: 20111222
  Serious: Yes (Other)
  Sender: FDA-Public Use
  Company Number: PHHY2011CN79235

PATIENT
  Sex: Male
  Weight: 52 kg

DRUGS (2)
  1. TASIGNA [Suspect]
     Dosage: 400 MG, QD
     Route: 048
     Dates: start: 20110701
  2. TASIGNA [Suspect]
     Indication: CHRONIC MYELOID LEUKAEMIA
     Dosage: 800 MG, QD
     Route: 048
     Dates: start: 20110601

REACTIONS (3)
  - LEUKOPENIA [None]
  - HAEMATOTOXICITY [None]
  - THROMBOCYTOPENIA [None]
